FAERS Safety Report 23445895 (Version 5)
Quarter: 2024Q3

REPORT INFORMATION
  Report Type: Spontaneous
  Country: US (occurrence: US)
  Receive Date: 20240126
  Receipt Date: 20240903
  Transmission Date: 20241016
  Serious: Yes (Other)
  Sender: BRISTOL MYERS SQUIBB
  Company Number: US-BRISTOL-MYERS SQUIBB COMPANY-2024-013581

PATIENT
  Age: 69 Year
  Sex: Male
  Weight: 155.9 kg

DRUGS (7)
  1. LENALIDOMIDE [Suspect]
     Active Substance: LENALIDOMIDE
     Indication: Plasma cell myeloma
     Route: 048
     Dates: start: 20210811
  2. LENALIDOMIDE [Suspect]
     Active Substance: LENALIDOMIDE
     Dosage: DAILY 1-21, THEN 7 DAYS OFF
     Route: 048
     Dates: start: 20230906
  3. LENALIDOMIDE [Suspect]
     Active Substance: LENALIDOMIDE
     Route: 048
  4. DEXAMETHASONE [Concomitant]
     Active Substance: DEXAMETHASONE
     Route: 048
     Dates: start: 20230905
  5. FUROSEMIDE [Concomitant]
     Active Substance: FUROSEMIDE
     Route: 048
     Dates: start: 20211008
  6. NITROGLYCERIN [Concomitant]
     Active Substance: NITROGLYCERIN
     Route: 060
     Dates: start: 20211008
  7. ENTRESTO [Concomitant]
     Active Substance: SACUBITRIL\VALSARTAN
     Dosage: DOSE-24-26MG
     Route: 048
     Dates: start: 20211008

REACTIONS (13)
  - Cardiomegaly [Not Recovered/Not Resolved]
  - Nasopharyngitis [Not Recovered/Not Resolved]
  - Fatigue [Not Recovered/Not Resolved]
  - Dyspnoea [Not Recovered/Not Resolved]
  - Hypertension [Unknown]
  - Muscle strain [Recovering/Resolving]
  - Cardiac dysfunction [Recovering/Resolving]
  - Chest pain [Recovering/Resolving]
  - Weight increased [Recovering/Resolving]
  - Somnolence [Unknown]
  - Diarrhoea [Not Recovered/Not Resolved]
  - Back pain [Recovered/Resolved]
  - Disorientation [Unknown]

NARRATIVE: CASE EVENT DATE: 20240801
